FAERS Safety Report 8251127 (Version 2)
Quarter: 2012Q4

REPORT INFORMATION
  Report Type: 
  Country: US (occurrence: US)
  Receive Date: 20111117
  Receipt Date: 20121023
  Transmission Date: 20130627
  Serious: Yes (Other)
  Sender: FDA-Public Use
  Company Number: US-AMGEN-USASP2011006115

PATIENT
  Age: 63 Year
  Sex: Male

DRUGS (2)
  1. ENBREL [Suspect]
     Indication: PSORIASIS
     Dosage: 50 mg, 2 times/wk
     Route: 058
     Dates: start: 2008, end: 201112
  2. METHOTREXATE [Concomitant]
     Indication: PSORIASIS
     Dosage: 20 mg, qwk
     Route: 048
     Dates: start: 201101, end: 201112

REACTIONS (3)
  - Diffuse large B-cell lymphoma [Not Recovered/Not Resolved]
  - Joint injury [Unknown]
  - Arthralgia [Not Recovered/Not Resolved]
